FAERS Safety Report 25603097 (Version 1)
Quarter: 2025Q3

REPORT INFORMATION
  Report Type: Spontaneous
  Country: JP (occurrence: JP)
  Receive Date: 20250724
  Receipt Date: 20250724
  Transmission Date: 20251020
  Serious: Yes (Hospitalization, Other)
  Sender: MERCK SHARP & DOHME LLC
  Company Number: JP-009507513-2310275

PATIENT
  Sex: Female

DRUGS (3)
  1. PEMBROLIZUMAB [Suspect]
     Active Substance: PEMBROLIZUMAB
     Indication: Triple negative breast cancer
     Route: 065
  2. CARBOPLATIN [Concomitant]
     Active Substance: CARBOPLATIN
     Indication: Triple negative breast cancer
     Route: 065
  3. PTX [Concomitant]
     Indication: Triple negative breast cancer
     Route: 065

REACTIONS (4)
  - Immune-mediated hepatic disorder [Recovered/Resolved]
  - Type 1 diabetes mellitus [Recovering/Resolving]
  - Immune-mediated dermatitis [Recovered/Resolved]
  - Immune-mediated gastrointestinal disorder [Recovered/Resolved]
